FAERS Safety Report 12320596 (Version 1)
Quarter: 2016Q2

REPORT INFORMATION
  Report Type: Report from Study
  Country: DE (occurrence: DE)
  Receive Date: 20160429
  Receipt Date: 20160429
  Transmission Date: 20160815
  Serious: Yes (Hospitalization)
  Sender: FDA-Public Use
  Company Number: PHHO2011DE025363

PATIENT
  Age: 78 Year
  Sex: Female
  Weight: 103 kg

DRUGS (7)
  1. OXYCODAN [Concomitant]
     Indication: PAIN
     Dosage: 10 MG, OT
     Route: 048
  2. CHLORAMBUCIL [Suspect]
     Active Substance: CHLORAMBUCIL
     Dosage: 10 MG/M2,
     Route: 048
     Dates: start: 20110426, end: 20110502
  3. SORMODREN [Concomitant]
     Active Substance: BORNAPRINE HYDROCHLORIDE
     Indication: PARKINSON^S DISEASE
     Dosage: 4 MG, OT
     Route: 048
  4. ENALAPRIL [Concomitant]
     Active Substance: ENALAPRIL
     Indication: HYPERTENSION
     Dosage: 20 MG, QD
     Route: 048
  5. CHLORAMBUCIL [Suspect]
     Active Substance: CHLORAMBUCIL
     Indication: CHRONIC LYMPHOCYTIC LEUKAEMIA
     Dosage: 10 MG/M2, DAYS 1-7 EVERY 28 DAYS
     Route: 048
     Dates: start: 20110329, end: 20110404
  6. CHLORAMBUCIL [Suspect]
     Active Substance: CHLORAMBUCIL
     Dosage: 10 MG/M2,
     Route: 048
     Dates: start: 20110524, end: 20110530
  7. BISOPROLOL [Concomitant]
     Active Substance: BISOPROLOL
     Indication: HYPERTENSION
     Dosage: OT
     Route: 048

REACTIONS (1)
  - Dizziness [Recovered/Resolved]

NARRATIVE: CASE EVENT DATE: 20110529
